FAERS Safety Report 26217570 (Version 1)
Quarter: 2025Q4

REPORT INFORMATION
  Report Type: Spontaneous
  Country: US (occurrence: US)
  Receive Date: 20251231
  Receipt Date: 20251231
  Transmission Date: 20260118
  Serious: No
  Sender: TORRENT PHARMA INC.
  Company Number: US-TORRENT-00014679

PATIENT
  Age: 63 Year
  Sex: Female

DRUGS (1)
  1. TADALAFIL [Suspect]
     Active Substance: TADALAFIL
     Indication: Pulmonary arterial hypertension
     Dosage: ONE-HALF TABLET (10 MG) ORALLY ONCE DAILY
     Route: 048
     Dates: start: 20251129, end: 20251211

REACTIONS (5)
  - Headache [Recovered/Resolved]
  - Eye pruritus [Recovered/Resolved]
  - Erythema [Recovered/Resolved]
  - Wrong technique in product usage process [Unknown]
  - Gastrooesophageal reflux disease [Recovered/Resolved]
